FAERS Safety Report 18943378 (Version 1)
Quarter: 2021Q1

REPORT INFORMATION
  Report Type: Spontaneous
  Country: US (occurrence: US)
  Receive Date: 20210226
  Receipt Date: 20210226
  Transmission Date: 20210420
  Serious: Yes (Other)
  Sender: FDA-Public Use
  Company Number: US-AMGEN-USASP2021026624

PATIENT

DRUGS (1)
  1. RITUXIMAB?ARRX. [Suspect]
     Active Substance: RITUXIMAB-ARRX
     Indication: PRODUCT USED FOR UNKNOWN INDICATION
     Dosage: UNK
     Route: 065

REACTIONS (6)
  - Blood immunoglobulin M decreased [Unknown]
  - Sepsis [Unknown]
  - Colitis [Unknown]
  - Lower respiratory tract infection [Unknown]
  - Skin infection [Unknown]
  - Upper respiratory tract infection [Unknown]
